FAERS Safety Report 24033559 (Version 3)
Quarter: 2024Q3

REPORT INFORMATION
  Report Type: Spontaneous
  Country: GB (occurrence: GB)
  Receive Date: 20240701
  Receipt Date: 20240711
  Transmission Date: 20241016
  Serious: Yes (Hospitalization, Disabling)
  Sender: CELLTRION
  Company Number: GB-CELLTRION INC.-2024GB015556

PATIENT

DRUGS (1)
  1. YUFLYMA [Suspect]
     Active Substance: ADALIMUMAB-AATY
     Indication: Rheumatoid arthritis
     Dosage: UNK
     Route: 058
     Dates: start: 20240611

REACTIONS (4)
  - Diarrhoea [Not Recovered/Not Resolved]
  - Gastritis [Recovered/Resolved]
  - Hypersomnia [Not Recovered/Not Resolved]
  - Vomiting [Not Recovered/Not Resolved]
